FAERS Safety Report 6541650-6 (Version None)
Quarter: 2010Q1

REPORT INFORMATION
  Report Type: 
  Country: None (occurrence: None)
  Receive Date: 20100119
  Receipt Date: 20100111
  Transmission Date: 20100710
  Serious: No
  Sender: FDA-Public Use
  Company Number: US-B.I. PHARMACEUTICALS,INC./RIDGEFIELD-2009-BP-14759BP

PATIENT
  Sex: Female

DRUGS (7)
  1. ZANTAC 150 [Suspect]
     Indication: GASTROOESOPHAGEAL REFLUX DISEASE
     Dosage: 150 MG
     Route: 048
     Dates: start: 20091101, end: 20100109
  2. ZANTAC 150 [Suspect]
     Dosage: 600 MG
     Route: 048
     Dates: start: 20100110, end: 20100110
  3. LABETALOL HCL [Concomitant]
     Indication: HYPERTENSION
  4. LASIX [Concomitant]
     Indication: HYPERTENSION
  5. DIOVAN [Concomitant]
     Indication: HYPERTENSION
  6. GLIPIZIDE [Concomitant]
     Indication: DIABETES MELLITUS
  7. PREVACOL [Concomitant]
     Indication: BLOOD CHOLESTEROL INCREASED

REACTIONS (6)
  - CHROMATURIA [None]
  - DIZZINESS [None]
  - FATIGUE [None]
  - MUSCULAR WEAKNESS [None]
  - NAUSEA [None]
  - PRURITUS [None]
